FAERS Safety Report 19199201 (Version 2)
Quarter: 2021Q2

REPORT INFORMATION
  Report Type: Spontaneous
  Country: US (occurrence: US)
  Receive Date: 20210429
  Receipt Date: 20210608
  Transmission Date: 20210717
  Serious: Yes (Death, Other)
  Sender: FDA-Public Use
  Company Number: US-009507513-2104USA007289

PATIENT
  Sex: Male

DRUGS (1)
  1. RECARBRIO [Suspect]
     Active Substance: CILASTATIN\IMIPENEM ANHYDROUS\RELEBACTAM ANHYDROUS
     Indication: PSEUDOMONAL SKIN INFECTION
     Route: 042

REACTIONS (3)
  - Product use in unapproved indication [Unknown]
  - Bacteraemia [Fatal]
  - Sepsis [Fatal]
